FAERS Safety Report 4596567-3 (Version None)
Quarter: 2005Q1

REPORT INFORMATION
  Report Type: 
  Country: None (occurrence: None)
  Receive Date: 20050228
  Receipt Date: 20050210
  Transmission Date: 20050727
  Serious: Yes (Other)
  Sender: FDA-Public Use
  Company Number: 2005-DE-00197DE

PATIENT
  Age: 70 Year
  Sex: Male

DRUGS (4)
  1. SIFROL (PRAMIPEXOLE DIHYDROCHLORIDE) (TA) [Suspect]
     Indication: PARKINSON'S DISEASE
     Dosage: 1.06 MG PO
     Route: 048
  2. LEVODOPA (LEVODOPA) [Concomitant]
  3. ASS 100 [Concomitant]
  4. ALNA [Concomitant]

REACTIONS (1)
  - URINARY RETENTION [None]
